FAERS Safety Report 9527117 (Version 3)
Quarter: 2013Q4

REPORT INFORMATION
  Report Type: Spontaneous
  Country: US (occurrence: US)
  Receive Date: 20130916
  Receipt Date: 20131127
  Transmission Date: 20140711
  Serious: Yes (Death, Hospitalization)
  Sender: FDA-Public Use
  Company Number: US-B.I. PHARMACEUTICALS,INC./RIDGEFIELD-2013-BI-28779BP

PATIENT
  Age: 76 Year
  Sex: Female
  Weight: 63.5 kg

DRUGS (11)
  1. PRADAXA [Suspect]
     Indication: ATRIAL FIBRILLATION
     Dosage: 300 MG
     Route: 048
     Dates: start: 20101229, end: 20120824
  2. COREG [Concomitant]
     Indication: ATRIAL FIBRILLATION
     Dates: start: 2011, end: 2012
  3. COREG [Concomitant]
     Indication: HYPERTENSION
  4. SYNTHROID [Concomitant]
     Indication: HYPOTHYROIDISM
  5. DIGOXIN [Concomitant]
  6. LASIX [Concomitant]
     Indication: CARDIAC FAILURE
  7. WELLBUTRIN [Concomitant]
  8. CELEBREX [Concomitant]
     Indication: BACK PAIN
  9. CELEXA [Concomitant]
     Indication: DEPRESSION
  10. CELEXA [Concomitant]
     Indication: ANXIETY
  11. FENTANYL [Concomitant]
     Indication: BACK PAIN
     Dates: start: 2009, end: 2012

REACTIONS (2)
  - Respiratory failure [Fatal]
  - Gastrointestinal haemorrhage [Unknown]
